FAERS Safety Report 8599547 (Version 3)
Quarter: 2012Q4

REPORT INFORMATION
  Report Type: 
  Country: US (occurrence: US)
  Receive Date: 20120605
  Receipt Date: 20121206
  Transmission Date: 20130627
  Serious: No
  Sender: FDA-Public Use
  Company Number: US-ASTRAZENECA-2012SE24838

PATIENT
  Age: 51 Year
  Sex: Female

DRUGS (3)
  1. SYMBICORT PMDI [Suspect]
     Indication: ASTHMA
     Dosage: 160/4.5 MCG, TWO PUFS, TWO TIMES A DAY
     Route: 055
     Dates: start: 20121012
  2. SYMBICORT PMDI [Suspect]
     Indication: ASTHMA
     Dosage: 320MCG, TWO TIMES A DAY
     Route: 055
  3. ALBUTEROL [Concomitant]

REACTIONS (4)
  - Chest discomfort [Unknown]
  - Adverse event [Unknown]
  - Intentional drug misuse [Unknown]
  - Off label use [Unknown]
